FAERS Safety Report 18489542 (Version 14)
Quarter: 2022Q4

REPORT INFORMATION
  Report Type: Other
  Country: CZ (occurrence: CZ)
  Receive Date: 20201111
  Receipt Date: 20221122
  Transmission Date: 20230113
  Serious: Yes (Hospitalization, Disabling, Other)
  Sender: FDA-Public Use
  Company Number: None

PATIENT
  Age: 96 Year
  Sex: Female

DRUGS (133)
  1. DONEPEZIL [Interacting]
     Active Substance: DONEPEZIL
     Indication: Product used for unknown indication
     Dosage: UNK
     Route: 065
  2. TRAZODONE [Interacting]
     Active Substance: TRAZODONE HYDROCHLORIDE
     Indication: Product used for unknown indication
     Dosage: UNK
     Route: 065
  3. TRAMADOL [Interacting]
     Active Substance: TRAMADOL
     Indication: Product used for unknown indication
     Dosage: UNK, OVERUSED, MISUSE
     Route: 048
  4. TRAMADOL [Interacting]
     Active Substance: TRAMADOL
     Dosage: UNK
     Route: 065
  5. METHOTREXATE [Interacting]
     Active Substance: METHOTREXATE
     Indication: Rheumatoid arthritis
     Dosage: 10 MILLIGRAM, ONCE A WEEK
     Route: 048
     Dates: start: 2010
  6. METHOTREXATE [Interacting]
     Active Substance: METHOTREXATE
     Dosage: UNK (DOSE REDUCED)
     Route: 065
  7. METHOTREXATE [Interacting]
     Active Substance: METHOTREXATE
     Dosage: 10 MILLIGRAM (WEEKS)
     Route: 048
  8. OMEPRAZOLE [Interacting]
     Active Substance: OMEPRAZOLE
     Indication: Product used for unknown indication
     Dosage: UNK
     Route: 065
  9. ALPRAZOLAM [Interacting]
     Active Substance: ALPRAZOLAM
     Indication: Product used for unknown indication
     Dosage: UNK
     Route: 065
  10. CAPTOPRIL [Interacting]
     Active Substance: CAPTOPRIL
     Indication: Hypertension
     Dosage: UNK
     Route: 065
  11. MELOXICAM [Interacting]
     Active Substance: MELOXICAM
     Indication: Post herpetic neuralgia
     Dosage: 1 DOSAGE FORM, ONCE A WEEK (TABLET)
     Route: 065
     Dates: start: 2015
  12. MELOXICAM [Interacting]
     Active Substance: MELOXICAM
     Indication: Pain
     Dosage: UNK (DOSE REDUCED)
     Route: 065
  13. MELOXICAM [Interacting]
     Active Substance: MELOXICAM
     Dosage: 15 MILLIGRAM, THRICE  A WEEK, TABLET
     Route: 048
  14. MELOXICAM [Interacting]
     Active Substance: MELOXICAM
     Dosage: UNK
     Route: 065
  15. MELOXICAM [Interacting]
     Active Substance: MELOXICAM
     Dosage: 15 MILLIGRAM
     Route: 065
     Dates: start: 2015
  16. MELOXICAM [Interacting]
     Active Substance: MELOXICAM
     Dosage: 15 MILLIGRAM (WEEKS)
     Route: 065
  17. MELOXICAM [Interacting]
     Active Substance: MELOXICAM
     Dosage: 1 DOSAGE FORM (WEEKS)
     Route: 048
  18. CALCIUM\CHOLECALCIFEROL [Interacting]
     Active Substance: CALCIUM\CHOLECALCIFEROL
     Indication: Calcium deficiency
     Dosage: 1 DOSAGE FORM, QD
     Route: 048
  19. CALCIUM\CHOLECALCIFEROL [Interacting]
     Active Substance: CALCIUM\CHOLECALCIFEROL
     Dosage: UNK (DOSE REDUCED)
     Route: 065
  20. CALCIUM\CHOLECALCIFEROL [Interacting]
     Active Substance: CALCIUM\CHOLECALCIFEROL
     Dosage: UNK
     Route: 065
  21. CALCIUM\CHOLECALCIFEROL [Interacting]
     Active Substance: CALCIUM\CHOLECALCIFEROL
     Dosage: UNK UNK, QD
     Route: 065
  22. CALCIUM\CHOLECALCIFEROL [Interacting]
     Active Substance: CALCIUM\CHOLECALCIFEROL
     Dosage: 1 DOSAGE FORM (DAYS)
     Route: 048
  23. CALCIUM\CHOLECALCIFEROL [Interacting]
     Active Substance: CALCIUM\CHOLECALCIFEROL
     Dosage: 1 DOSAGE FORM
     Route: 048
  24. OXAZEPAM [Interacting]
     Active Substance: OXAZEPAM
     Indication: Drug abuse
     Dosage: UNK/OVERUSED
     Route: 048
  25. OXAZEPAM [Interacting]
     Active Substance: OXAZEPAM
     Dosage: UNK
     Route: 065
  26. METOPROLOL TARTRATE [Interacting]
     Active Substance: METOPROLOL TARTRATE
     Indication: Product used for unknown indication
     Dosage: 25 MILLIGRAM, QD, TABLET
     Route: 048
  27. METOPROLOL TARTRATE [Interacting]
     Active Substance: METOPROLOL TARTRATE
     Dosage: UNK (DOSE REDUCED),TABLET
     Route: 065
  28. METOPROLOL TARTRATE [Interacting]
     Active Substance: METOPROLOL TARTRATE
     Dosage: 25 MILLIGRAM, QD, TABLET
     Route: 048
  29. METOPROLOL TARTRATE [Interacting]
     Active Substance: METOPROLOL TARTRATE
     Dosage: 25 MILLIGRAM, QD,TABLET
     Route: 065
  30. METOPROLOL TARTRATE [Interacting]
     Active Substance: METOPROLOL TARTRATE
     Dosage: 25 MILLIGRAM (DAYS)
     Route: 048
  31. FOLIC ACID [Interacting]
     Active Substance: FOLIC ACID
     Indication: Product used for unknown indication
     Dosage: 1 DOSAGE FORM, QD
     Route: 048
  32. FOLIC ACID [Interacting]
     Active Substance: FOLIC ACID
     Dosage: UNK (DOSE REDUCED)
     Route: 065
  33. FOLIC ACID [Interacting]
     Active Substance: FOLIC ACID
     Dosage: UNK UNK, ONCE A WEEK
     Route: 065
  34. FOLIC ACID [Interacting]
     Active Substance: FOLIC ACID
     Dosage: 1 DOSAGE FORM (DAYS)
     Route: 048
  35. FOLIC ACID [Interacting]
     Active Substance: FOLIC ACID
     Dosage: UNK
     Route: 065
  36. METAMIZOLE [Interacting]
     Active Substance: METAMIZOLE
     Indication: Post herpetic neuralgia
     Dosage: 500 MILLIGRAM, PER DAY
     Route: 048
     Dates: start: 2015
  37. METAMIZOLE [Interacting]
     Active Substance: METAMIZOLE
     Indication: Hypertension
     Dosage: UNK (DOSE REDUCED)
     Route: 065
  38. METAMIZOLE [Interacting]
     Active Substance: METAMIZOLE
     Dosage: UNK
     Route: 065
  39. METAMIZOLE [Interacting]
     Active Substance: METAMIZOLE
     Dosage: 500 MILLIGRAM, BID (1000 MG/DAY)
     Route: 065
  40. METAMIZOLE [Interacting]
     Active Substance: METAMIZOLE
     Dosage: 500 MILLIGRAM
     Route: 065
  41. METAMIZOLE [Interacting]
     Active Substance: METAMIZOLE
     Dosage: 500 MILLIGRAM
     Route: 048
  42. TELMISARTAN [Interacting]
     Active Substance: TELMISARTAN
     Indication: Hypertension
     Dosage: 1 DOSAGE FORM (1DF=80/12.5 MG) (PER DAY), TABLET
     Route: 048
  43. TELMISARTAN [Interacting]
     Active Substance: TELMISARTAN
     Dosage: UNK (DOSE REDUCED), TABLET
     Route: 065
  44. TELMISARTAN [Interacting]
     Active Substance: TELMISARTAN
     Dosage: UNK UNK, QD, TABLET
     Route: 065
  45. TELMISARTAN [Interacting]
     Active Substance: TELMISARTAN
     Dosage: 1 DOSAGE FORM
     Route: 048
  46. CORDARONE [Interacting]
     Active Substance: AMIODARONE HYDROCHLORIDE
     Indication: Atrial fibrillation
     Dosage: 200 MILLIGRAM, QD, TABLET
     Route: 065
  47. CORDARONE [Interacting]
     Active Substance: AMIODARONE HYDROCHLORIDE
     Dosage: UNK (DOSE REDUCED)
     Route: 065
  48. CORDARONE [Interacting]
     Active Substance: AMIODARONE HYDROCHLORIDE
     Dosage: 200 MILLIGRAM
     Route: 065
  49. CORDARONE [Interacting]
     Active Substance: AMIODARONE HYDROCHLORIDE
     Dosage: 200 MILLIGRAM (DAYS)
     Route: 048
  50. ELIQUIS [Interacting]
     Active Substance: APIXABAN
     Indication: Anticoagulant therapy
     Dosage: 5 MILLIGRAM, EVERY 12 HRS, MEDICATION ERROR, FILM COATED TABLET
     Route: 048
  51. ELIQUIS [Interacting]
     Active Substance: APIXABAN
     Dosage: 5 MILLIGRAM (PER DAY), FILM COATED TABLET
     Route: 065
  52. ELIQUIS [Interacting]
     Active Substance: APIXABAN
     Dosage: UNK (DOSE REDUCED), FILM COATED TABLET
     Route: 065
  53. ELIQUIS [Interacting]
     Active Substance: APIXABAN
     Dosage: 5 MILLIGRAM, UNCOATED TABLET
     Route: 048
  54. NICOFURANOSE [Interacting]
     Active Substance: NICOFURANOSE
     Indication: Encephalopathy
     Dosage: UNK UNK, QD
     Route: 065
  55. NICOFURANOSE [Interacting]
     Active Substance: NICOFURANOSE
     Dosage: UNK (DOSE REDUCED)
     Route: 065
  56. NICOFURANOSE [Interacting]
     Active Substance: NICOFURANOSE
     Dosage: 1 DOSAGE FORM, PER DAY, (1 DF, QD (0-1-0))
     Route: 048
  57. NICOFURANOSE [Interacting]
     Active Substance: NICOFURANOSE
     Dosage: UNK
     Route: 048
  58. SODIUM PICOSULFATE [Interacting]
     Active Substance: SODIUM PICOSULFATE
     Indication: Constipation
     Dosage: 1 DOSAGE FORM (1DF=10-20 GUTTES), IN THE EVENING
     Route: 065
  59. SODIUM PICOSULFATE [Interacting]
     Active Substance: SODIUM PICOSULFATE
     Dosage: 1 DOSAGE FORM (DOSE REDUCED)
     Route: 065
  60. SODIUM PICOSULFATE [Interacting]
     Active Substance: SODIUM PICOSULFATE
     Dosage: UNK
     Route: 065
  61. SODIUM PICOSULFATE [Interacting]
     Active Substance: SODIUM PICOSULFATE
     Dosage: 1 DOSAGE FORM
     Route: 065
  62. SODIUM CHONDROITIN SULFATE [Interacting]
     Active Substance: SODIUM CHONDROITIN SULFATE
     Indication: Rheumatoid arthritis
     Dosage: 800 MILLIGRAM, QD IN THE EVENING, TABLET
     Route: 048
  63. SODIUM CHONDROITIN SULFATE [Interacting]
     Active Substance: SODIUM CHONDROITIN SULFATE
     Dosage: UNK (DOSE REDUCED), TABLET
     Route: 065
  64. SODIUM CHONDROITIN SULFATE [Interacting]
     Active Substance: SODIUM CHONDROITIN SULFATE
     Dosage: UNK, TABLET
     Route: 065
  65. SODIUM CHONDROITIN SULFATE [Interacting]
     Active Substance: SODIUM CHONDROITIN SULFATE
     Dosage: 800 MILLIGRAM/DAY
     Route: 048
  66. ROSUVASTATIN CALCIUM [Interacting]
     Active Substance: ROSUVASTATIN CALCIUM
     Indication: Product used for unknown indication
     Dosage: 20 MILLIGRAM, QD, TABLET
     Route: 065
  67. ROSUVASTATIN CALCIUM [Interacting]
     Active Substance: ROSUVASTATIN CALCIUM
     Dosage: UNK (DOSE REDUCED)
     Route: 065
  68. ROSUVASTATIN CALCIUM [Interacting]
     Active Substance: ROSUVASTATIN CALCIUM
     Dosage: 20 MILLIGRAM
     Route: 065
  69. ROSUVASTATIN CALCIUM [Interacting]
     Active Substance: ROSUVASTATIN CALCIUM
     Dosage: UNK
     Route: 065
  70. ROSUVASTATIN CALCIUM [Interacting]
     Active Substance: ROSUVASTATIN CALCIUM
     Dosage: 20 MILLIGRAM
     Route: 048
  71. EUTHYROX [Interacting]
     Active Substance: LEVOTHYROXINE SODIUM
     Indication: Autoimmune thyroiditis
     Dosage: 100 MICROGRAM, QD
     Route: 048
  72. EUTHYROX [Interacting]
     Active Substance: LEVOTHYROXINE SODIUM
     Indication: Autoimmune thyroiditis
     Dosage: 100 MICROGRAM, QD
     Route: 065
  73. EUTHYROX [Interacting]
     Active Substance: LEVOTHYROXINE SODIUM
     Dosage: UNK (DOSE REDUCED)
     Route: 065
  74. EUTHYROX [Interacting]
     Active Substance: LEVOTHYROXINE SODIUM
     Dosage: 100 MICROGRAM
     Route: 065
  75. EUTHYROX [Interacting]
     Active Substance: LEVOTHYROXINE SODIUM
     Dosage: 100 MICROGRAM (DAYS)
     Route: 048
  76. FENTANYL [Interacting]
     Active Substance: FENTANYL
     Indication: Post herpetic neuralgia
     Dosage: 25 MICROGRAM  Q72H, MEDICATION ERROR
     Route: 065
     Dates: start: 2015
  77. FENTANYL [Interacting]
     Active Substance: FENTANYL
     Indication: Pain
     Dosage: UNK (DOSE REDUCED)
     Route: 065
  78. FENTANYL [Interacting]
     Active Substance: FENTANYL
     Dosage: 25 MICROGRAM, TRANSDERMAL PATCH
     Route: 062
  79. PANADOL [Interacting]
     Active Substance: ACETAMINOPHEN
     Indication: Pain
     Dosage: 1.5 DF (3-4 TIMES A DAY), TABLET
     Route: 065
  80. PANADOL [Interacting]
     Active Substance: ACETAMINOPHEN
     Dosage: 750 MILLIGRAM, DAILY (1.5 TABLETS 3-4 TIMES A DAY)
     Route: 065
  81. PANADOL [Interacting]
     Active Substance: ACETAMINOPHEN
     Dosage: UNK
     Route: 065
  82. PANADOL [Interacting]
     Active Substance: ACETAMINOPHEN
     Dosage: UNK
     Route: 065
  83. PANADOL [Interacting]
     Active Substance: ACETAMINOPHEN
     Dosage: 750 MILLIGRAM
     Route: 048
  84. CONTROLOC [Interacting]
     Active Substance: PANTOPRAZOLE SODIUM
     Indication: Nausea
     Dosage: 20 MILLIGRAM, QD, GASTRO-RESISTANT TABLET
     Route: 065
  85. CONTROLOC [Interacting]
     Active Substance: PANTOPRAZOLE SODIUM
     Dosage: 20 MILLIGRAM
     Route: 065
  86. CONTROLOC [Interacting]
     Active Substance: PANTOPRAZOLE SODIUM
     Dosage: 10 MILLIGRAM
     Route: 065
  87. CONTROLOC [Interacting]
     Active Substance: PANTOPRAZOLE SODIUM
     Dosage: 10 MILLIGRAM
     Route: 048
  88. CONTROLOC [Interacting]
     Active Substance: PANTOPRAZOLE SODIUM
     Dosage: 20 MILLIGRAM (DAYS)
     Route: 065
  89. ACETAMINOPHEN\CAFFEINE\PROPYPHENAZONE [Interacting]
     Active Substance: ACETAMINOPHEN\CAFFEINE\PROPYPHENAZONE
     Indication: Hypertension
     Dosage: 500 MILLIGRAM, EVERY 12 HRS, MEDICATION ERROR
     Route: 065
  90. ACETAMINOPHEN\CAFFEINE\PROPYPHENAZONE [Interacting]
     Active Substance: ACETAMINOPHEN\CAFFEINE\PROPYPHENAZONE
     Dosage: UNK (DOSE REDUCED)
     Route: 065
  91. ACETAMINOPHEN\CAFFEINE\PROPYPHENAZONE [Interacting]
     Active Substance: ACETAMINOPHEN\CAFFEINE\PROPYPHENAZONE
     Dosage: 500 MILLIGRAM, EVERY 12 HRS (TABLET UNCOATED)
     Route: 048
  92. METOPROLOL SUCCINATE [Interacting]
     Active Substance: METOPROLOL SUCCINATE
     Indication: Hypertension
     Dosage: 25 MILLIGRAM, QD
     Route: 065
  93. METOPROLOL SUCCINATE [Interacting]
     Active Substance: METOPROLOL SUCCINATE
     Dosage: UNK (DOSE REDUCED)
     Route: 065
  94. POTASSIUM ASPARTATE [Interacting]
     Active Substance: POTASSIUM ASPARTATE
     Indication: Product used for unknown indication
     Dosage: UNK
     Route: 065
  95. POTASSIUM ASPARTATE [Interacting]
     Active Substance: POTASSIUM ASPARTATE
     Dosage: UNK
     Route: 065
  96. MAGNESIUM ASPARTATE\POTASSIUM ASPARTATE [Suspect]
     Active Substance: MAGNESIUM ASPARTATE\POTASSIUM ASPARTATE
     Indication: Product used for unknown indication
     Dosage: 1 DOSAGE FORM, PER DAY, 1 DF, QD (0-1-0)
     Route: 065
  97. MAGNESIUM ASPARTATE\POTASSIUM ASPARTATE [Suspect]
     Active Substance: MAGNESIUM ASPARTATE\POTASSIUM ASPARTATE
     Dosage: UNK
     Route: 065
  98. MAGNESIUM ASPARTATE [Interacting]
     Active Substance: MAGNESIUM ASPARTATE
     Indication: Product used for unknown indication
     Dosage: UNK, MEDICATION ERROR
     Route: 065
  99. GUAIFENESIN [Interacting]
     Active Substance: GUAIFENESIN
     Indication: Product used for unknown indication
     Dosage: UNK
     Route: 065
  100. GUAIFENESIN [Interacting]
     Active Substance: GUAIFENESIN
     Dosage: UNK
     Route: 065
  101. RAMIPRIL [Interacting]
     Active Substance: RAMIPRIL
     Indication: Product used for unknown indication
     Dosage: UNK
     Route: 065
  102. ZOLPIDEM TARTRATE [Suspect]
     Active Substance: ZOLPIDEM TARTRATE
     Indication: Drug abuse
     Dosage: UNK, OVER USED
     Route: 065
  103. ZOLPIDEM TARTRATE [Suspect]
     Active Substance: ZOLPIDEM TARTRATE
     Dosage: UNK, OVERUSED
     Route: 065
  104. ZOLPIDEM TARTRATE [Suspect]
     Active Substance: ZOLPIDEM TARTRATE
     Dosage: UNK, OVERUSED
     Route: 065
  105. ZOLPIDEM TARTRATE [Suspect]
     Active Substance: ZOLPIDEM TARTRATE
     Dosage: UNK
     Route: 065
  106. ZOLPIDEM TARTRATE [Suspect]
     Active Substance: ZOLPIDEM TARTRATE
     Dosage: UNK
     Route: 065
  107. IBUPROFEN [Interacting]
     Active Substance: IBUPROFEN
     Indication: Pain
     Dosage: UNK, MISUSE
     Route: 065
  108. IBUPROFEN [Interacting]
     Active Substance: IBUPROFEN
     Dosage: UNK
     Route: 065
  109. PREDNISONE [Suspect]
     Active Substance: PREDNISONE
     Indication: Steroid therapy
     Dosage: 5 MILLIGRAM (DAYS)
     Route: 048
  110. PREDNISONE [Suspect]
     Active Substance: PREDNISONE
     Dosage: UNK, DOSE REDUCED
     Route: 065
  111. PREDNISONE [Suspect]
     Active Substance: PREDNISONE
     Dosage: 5 MILLIGRAM PER DAY
     Route: 048
  112. PREDNISONE [Suspect]
     Active Substance: PREDNISONE
     Dosage: 5 MILLIGRAM PER DAY
     Route: 065
  113. PREDNISONE [Suspect]
     Active Substance: PREDNISONE
     Dosage: UNK UNK, QD (1-0-0)
     Route: 065
  114. PREDNISONE [Suspect]
     Active Substance: PREDNISONE
     Dosage: UNK, 2-0-0
     Route: 065
  115. AMLODIPINE BESYLATE [Interacting]
     Active Substance: AMLODIPINE BESYLATE
     Indication: Hypertension
     Dosage: 5 MILLIGRAM, QD (TABLET)
     Route: 065
  116. AMLODIPINE BESYLATE [Interacting]
     Active Substance: AMLODIPINE BESYLATE
     Dosage: UNK, DOSE REDUCED, TABLET
     Route: 065
  117. AMLODIPINE BESYLATE [Interacting]
     Active Substance: AMLODIPINE BESYLATE
     Dosage: UNK, TABLET
     Route: 065
  118. AMLODIPINE BESYLATE [Interacting]
     Active Substance: AMLODIPINE BESYLATE
     Dosage: 5 MILLIGRAM, QD, TABLET
     Route: 065
  119. AMLODIPINE BESYLATE [Interacting]
     Active Substance: AMLODIPINE BESYLATE
     Dosage: 5 MILLIGRAM, TABLET
     Route: 065
  120. AMLODIPINE BESYLATE [Interacting]
     Active Substance: AMLODIPINE BESYLATE
     Dosage: UNK
     Route: 065
  121. AMLODIPINE BESYLATE [Interacting]
     Active Substance: AMLODIPINE BESYLATE
     Dosage: 5 MILLIGRAM
     Route: 048
  122. MELOXICAM [Interacting]
     Active Substance: MELOXICAM
     Indication: Pain
     Dosage: 1 DOSAGE FORM, ONCE A WEEK (TABLET)
     Route: 065
  123. MELOXICAM [Interacting]
     Active Substance: MELOXICAM
     Indication: Post herpetic neuralgia
     Dosage: UNK, DOSE REDUCED
     Route: 065
  124. MELOXICAM [Interacting]
     Active Substance: MELOXICAM
     Dosage: 15 MILLIGRAM, THRICE  A WEEK, TABLET
     Route: 048
  125. MELOXICAM [Interacting]
     Active Substance: MELOXICAM
     Dosage: 1 DOSAGE FORM, ONCE A WEEK (1 DF, QW)
     Route: 065
     Dates: start: 2015
  126. HYDROCHLOROTHIAZIDE\TELMISARTAN [Suspect]
     Active Substance: HYDROCHLOROTHIAZIDE\TELMISARTAN
     Indication: Product used for unknown indication
     Dosage: 80 MG/12.5 MG, ONE DOSAGE FORM DAILY
     Route: 048
  127. HYDROCHLOROTHIAZIDE\TELMISARTAN [Suspect]
     Active Substance: HYDROCHLOROTHIAZIDE\TELMISARTAN
     Dosage: UNK, 80 MG/12.5 MG, ONE DOSAGE FORM DAILY
     Route: 065
  128. HYDROCHLOROTHIAZIDE\TELMISARTAN [Suspect]
     Active Substance: HYDROCHLOROTHIAZIDE\TELMISARTAN
     Dosage: 1 DOSAGE FORM/DAY, 80/12.5 MG
     Route: 048
  129. PREGABALIN [Suspect]
     Active Substance: PREGABALIN
     Indication: Post herpetic neuralgia
     Dosage: UNK
     Route: 065
  130. PREGABALIN [Suspect]
     Active Substance: PREGABALIN
     Dosage: UNK
     Route: 048
  131. FENTANYL CITRATE [Suspect]
     Active Substance: FENTANYL CITRATE
     Indication: Product used for unknown indication
     Dosage: UNK
     Route: 065
  132. BISACODYL [Suspect]
     Active Substance: BISACODYL
     Indication: Constipation
     Dosage: UNK, 10-20 GTT IN THE EVENING
     Route: 065
  133. BISACODYL [Suspect]
     Active Substance: BISACODYL
     Dosage: UNK
     Route: 065

REACTIONS (53)
  - Apathy [Recovered/Resolved]
  - Atrial fibrillation [Recovered/Resolved]
  - Delirium [Recovered/Resolved]
  - Urinary retention [Recovered/Resolved]
  - Head discomfort [Recovered/Resolved]
  - Hypokalaemia [Recovered/Resolved]
  - Listless [Recovered/Resolved]
  - Oxygen saturation decreased [Recovered/Resolved]
  - Fall [Recovered/Resolved]
  - Vertigo [Recovered/Resolved]
  - Cognitive disorder [Recovered/Resolved]
  - Pelvic fracture [Recovered/Resolved]
  - Fracture [Recovered/Resolved]
  - Restlessness [Recovered/Resolved]
  - Cognitive disorder [Recovered/Resolved]
  - Concomitant disease aggravated [Recovered/Resolved]
  - Deafness [Recovered/Resolved]
  - Hypoacusis [Recovered/Resolved]
  - Drug abuse [Recovered/Resolved]
  - Drug interaction [Recovered/Resolved]
  - Encephalopathy [Recovered/Resolved]
  - Loss of personal independence in daily activities [Recovered/Resolved]
  - General physical health deterioration [Recovered/Resolved]
  - Bedridden [Recovered/Resolved]
  - Discomfort [Recovered/Resolved]
  - Mobility decreased [Recovered/Resolved]
  - Anxiety [Recovered/Resolved]
  - Anxiety [Recovered/Resolved]
  - Immobile [Recovered/Resolved]
  - Cognitive disorder [Recovered/Resolved]
  - Condition aggravated [Recovered/Resolved]
  - Mood swings [Recovered/Resolved]
  - Reduced facial expression [Recovered/Resolved]
  - Foreign body [Recovered/Resolved]
  - Dizziness [Recovered/Resolved]
  - Confusional state [Recovered/Resolved]
  - Hyponatraemia [Recovered/Resolved]
  - Affect lability [Recovered/Resolved]
  - Nausea [Recovered/Resolved]
  - Dehydration [Recovered/Resolved]
  - Contusion [Recovered/Resolved]
  - Sleep disorder [Recovered/Resolved]
  - Poor quality sleep [Recovered/Resolved]
  - Hypertension [Recovered/Resolved]
  - Liver function test abnormal [Recovered/Resolved]
  - Overdose [Recovered/Resolved]
  - Intentional product misuse [Unknown]
  - Incorrect dose administered [Unknown]
  - Medication error [Recovered/Resolved]
  - Prescription drug used without a prescription [Unknown]
  - Intentional overdose [Recovered/Resolved]
  - Product use issue [Recovered/Resolved]
  - Self-medication [Recovered/Resolved]

NARRATIVE: CASE EVENT DATE: 20180101
